FAERS Safety Report 12374735 (Version 1)
Quarter: 2016Q2

REPORT INFORMATION
  Report Type: Spontaneous
  Country: US (occurrence: US)
  Receive Date: 20160517
  Receipt Date: 20160517
  Transmission Date: 20160815
  Serious: No
  Sender: FDA-Public Use
  Company Number: US-PFIZER INC-2015378298

PATIENT
  Age: 51 Year
  Sex: Male
  Weight: 79 kg

DRUGS (2)
  1. INLYTA [Suspect]
     Active Substance: AXITINIB
     Indication: THYROID CANCER
     Dosage: 7 MG (1-5 MG PILL AND 2-1 MG PILLS), 2X/DAY (EVRY 12 HOURS)
  2. INLYTA [Suspect]
     Active Substance: AXITINIB
     Dosage: 5 MG, 1X/DAY
     Route: 048

REACTIONS (2)
  - Product use issue [Unknown]
  - Weight decreased [Unknown]
